FAERS Safety Report 9519144 (Version 3)
Quarter: 2013Q4

REPORT INFORMATION
  Report Type: Spontaneous
  Country: US (occurrence: US)
  Receive Date: 20130912
  Receipt Date: 20131029
  Transmission Date: 20140711
  Serious: Yes (Other)
  Sender: FDA-Public Use
  Company Number: US-009507513-1309USA003839

PATIENT
  Age: 36 Year
  Sex: Female
  Weight: 181.41 kg

DRUGS (4)
  1. NEXPLANON [Suspect]
     Indication: CONTRACEPTION
     Dosage: DOSE/FREQUENCY: NORMAL
     Route: 059
     Dates: start: 20130829, end: 20130904
  2. NEXPLANON [Suspect]
     Dosage: UNK
     Route: 059
     Dates: start: 20130904
  3. FLOVENT [Concomitant]
  4. ALBUTEROL SULFATE [Concomitant]

REACTIONS (4)
  - Implant site cellulitis [Recovered/Resolved]
  - Implant site discharge [Recovered/Resolved]
  - Device difficult to use [Recovered/Resolved]
  - Medical device complication [Recovered/Resolved]
